FAERS Safety Report 12550238 (Version 2)
Quarter: 2016Q3

REPORT INFORMATION
  Report Type: Spontaneous
  Country: JP (occurrence: JP)
  Receive Date: 20160712
  Receipt Date: 20160720
  Transmission Date: 20161109
  Serious: Yes (Other)
  Sender: FDA-Public Use
  Company Number: JP-GILEAD-2014-0125094

PATIENT
  Age: 66 Year
  Sex: Female

DRUGS (3)
  1. HEPSERA [Suspect]
     Active Substance: ADEFOVIR DIPIVOXIL
     Indication: CHRONIC HEPATITIS B
     Dosage: 10 MG, QD
     Route: 048
     Dates: start: 2008
  2. HEPSERA [Suspect]
     Active Substance: ADEFOVIR DIPIVOXIL
     Dosage: 10 MG, QOD
     Route: 048
  3. LAMIVUDINE. [Concomitant]
     Active Substance: LAMIVUDINE

REACTIONS (9)
  - Fanconi syndrome acquired [Unknown]
  - Renal impairment [Unknown]
  - Osteomalacia [Unknown]
  - Bone density decreased [Unknown]
  - Hypophosphataemia [Recovering/Resolving]
  - Renal tubular disorder [Unknown]
  - Arthralgia [Unknown]
  - Bone metabolism disorder [Unknown]
  - Pseudarthrosis [Unknown]
